FAERS Safety Report 19653094 (Version 1)
Quarter: 2021Q3

REPORT INFORMATION
  Report Type: Spontaneous
  Country: US (occurrence: US)
  Receive Date: 20210803
  Receipt Date: 20210803
  Transmission Date: 20211014
  Serious: Yes (Other)
  Sender: FDA-Public Use
  Company Number: US-PFIZER INC-202100929418

PATIENT
  Age: 60 Year
  Sex: Female
  Weight: 122.47 kg

DRUGS (4)
  1. CHANTIX [Suspect]
     Active Substance: VARENICLINE TARTRATE
     Dosage: 1 MG, 2X/DAY (1 IN MORNING AND 1 AT NIGHT)
     Dates: start: 202104
  2. CHANTIX [Suspect]
     Active Substance: VARENICLINE TARTRATE
     Dosage: 1 MG, 2X/DAY (1 IN MORNING AND 1 AT NIGHT)
     Dates: start: 202105
  3. CHANTIX [Suspect]
     Active Substance: VARENICLINE TARTRATE
     Dosage: 1 MG, 2X/DAY (1 IN MORNING AND 1 AT NIGHT)
     Dates: start: 202103
  4. CHANTIX [Suspect]
     Active Substance: VARENICLINE TARTRATE
     Indication: SMOKING CESSATION THERAPY
     Dosage: UNK (3 MONTHS AND THEN 2 MONTHS LATER, SHE TOOK IT AGAIN)

REACTIONS (4)
  - Asthenia [Unknown]
  - Overweight [Unknown]
  - Neoplasm malignant [Unknown]
  - Abnormal dreams [Unknown]
